FAERS Safety Report 6074361-4 (Version None)
Quarter: 2009Q1

REPORT INFORMATION
  Report Type: 
  Country: None (occurrence: None)
  Receive Date: 20090211
  Receipt Date: 20090131
  Transmission Date: 20090719
  Serious: Yes (Other)
  Sender: FDA-Public Use
  Company Number: US-PFIZER INC-2008000296

PATIENT
  Sex: Female
  Weight: 68.181 kg

DRUGS (1)
  1. CHANTIX [Suspect]
     Indication: SMOKING CESSATION THERAPY
     Dates: start: 20071101, end: 20071201

REACTIONS (3)
  - EMOTIONAL DISORDER [None]
  - IRRITABILITY [None]
  - SELF INJURIOUS BEHAVIOUR [None]
